FAERS Safety Report 6801252-0 (Version None)
Quarter: 2010Q2

REPORT INFORMATION
  Report Type: 
  Country: None (occurrence: None)
  Receive Date: 20100629
  Receipt Date: 20100625
  Transmission Date: 20101027
  Serious: Yes (Other)
  Sender: FDA-Public Use
  Company Number: GB-WYE-G06328510

PATIENT
  Age: 60 Year
  Sex: Female
  Weight: 80 kg

DRUGS (1)
  1. IBUPROFEN [Suspect]
     Indication: OSTEOARTHRITIS
     Dosage: 500 MG (FREQUENCY UNKNOWN)
     Route: 048
     Dates: start: 20080101

REACTIONS (5)
  - BLISTER [None]
  - LIP BLISTER [None]
  - NAUSEA [None]
  - OROPHARYNGEAL BLISTERING [None]
  - SWELLING [None]
